FAERS Safety Report 17830977 (Version 3)
Quarter: 2020Q2

REPORT INFORMATION
  Report Type: Spontaneous
  Country: JP (occurrence: JP)
  Receive Date: 20200527
  Receipt Date: 20200625
  Transmission Date: 20200714
  Serious: Yes (Other)
  Sender: FDA-Public Use
  Company Number: JP-JNJFOC-20200521644

PATIENT
  Age: 86 Year
  Sex: Male
  Weight: 56 kg

DRUGS (7)
  1. REMINYL [Suspect]
     Active Substance: GALANTAMINE
     Indication: DEMENTIA ALZHEIMER^S TYPE
     Route: 048
     Dates: start: 20190311, end: 20200515
  2. RISPERDAL [Suspect]
     Active Substance: RISPERIDONE
     Indication: AMNESIA
     Route: 048
     Dates: start: 20190514
  3. LOXONIN [Concomitant]
     Active Substance: LOXOPROFEN SODIUM
     Dosage: UNKNOWN
     Route: 062
  4. DERMOVATE [Concomitant]
     Active Substance: CLOBETASOL
     Dosage: UNKNOWN
     Route: 003
  5. BELSOMRA [Concomitant]
     Active Substance: SUVOREXANT
     Route: 048
  6. RINDERON [Concomitant]
     Dosage: UNKNOWN
     Route: 003
  7. REMINYL [Suspect]
     Active Substance: GALANTAMINE
     Route: 048

REACTIONS (3)
  - Muscle spasms [Recovered/Resolved]
  - Altered state of consciousness [Recovered/Resolved]
  - Bradycardia [Recovered/Resolved]

NARRATIVE: CASE EVENT DATE: 20200515
